FAERS Safety Report 8454854-2 (Version None)
Quarter: 2012Q2

REPORT INFORMATION
  Report Type: 
  Country: None (occurrence: None)
  Receive Date: 20120621
  Receipt Date: 20120611
  Transmission Date: 20120825
  Serious: Yes (Hospitalization)
  Sender: FDA-Public Use
  Company Number: US-JNJFOC-20120408677

PATIENT
  Sex: Female
  Weight: 54.43 kg

DRUGS (1)
  1. STELARA [Suspect]
     Indication: PSORIASIS
     Route: 058
     Dates: start: 20100518

REACTIONS (4)
  - PULMONARY MASS [None]
  - ALCOHOL WITHDRAWAL SYNDROME [None]
  - ALCOHOLIC PANCREATITIS [None]
  - DEPRESSION [None]
